FAERS Safety Report 7961174-9 (Version None)
Quarter: 2011Q4

REPORT INFORMATION
  Report Type: 
  Country: None (occurrence: None)
  Receive Date: 20111207
  Receipt Date: 20111130
  Transmission Date: 20120403
  Serious: Yes (Hospitalization)
  Sender: FDA-Public Use
  Company Number: JP-PFIZER INC-2011293823

PATIENT
  Age: 6 Year
  Sex: Male

DRUGS (5)
  1. SOMATROPIN [Suspect]
     Indication: BODY HEIGHT BELOW NORMAL
     Dosage: 4.2 MG, WEEKLY
     Dates: start: 20090212, end: 20090914
  2. SOMATROPIN [Suspect]
     Dosage: 5.6 MG, WEEKLY
     Dates: start: 20090915, end: 20101118
  3. SOMATROPIN [Suspect]
     Dosage: 8.4 MG, WEEKLY
     Dates: start: 20110729
  4. SOMATROPIN [Suspect]
     Indication: SMALL FOR DATES BABY
     Dosage: 2.8 MG, WEEKLY
     Route: 058
     Dates: start: 20081202, end: 20090211
  5. SOMATROPIN [Suspect]
     Dosage: 7 MG, WEEKLY
     Dates: start: 20101119, end: 20110728

REACTIONS (1)
  - FEBRILE CONVULSION [None]
